FAERS Safety Report 6810356-8 (Version None)
Quarter: 2010Q2

REPORT INFORMATION
  Report Type: 
  Country: None (occurrence: None)
  Receive Date: 20100630
  Receipt Date: 20100615
  Transmission Date: 20101027
  Serious: Yes (Hospitalization)
  Sender: FDA-Public Use
  Company Number: PHHY2010DE39382

PATIENT
  Sex: Female

DRUGS (8)
  1. RASILEZ [Suspect]
     Indication: HYPERTENSION
     Dosage: 300 MG
     Route: 048
     Dates: start: 20080101
  2. VOLTAREN [Suspect]
     Indication: PAIN
     Dosage: UNK
     Route: 048
     Dates: start: 20080101
  3. METOHEXAL [Suspect]
     Indication: HYPERTENSION
     Dosage: 0.5 DF, BID
     Route: 048
     Dates: start: 20080101
  4. ALLOPURINOL [Suspect]
     Indication: HYPERURICAEMIA
     Dosage: UNK
     Route: 048
     Dates: start: 20080623
  5. MARCUMAR [Suspect]
     Indication: ATRIAL FIBRILLATION
     Dosage: UNK
     Route: 048
     Dates: start: 20080101
  6. ENALAPRIL MALEATE [Suspect]
     Indication: RENAL FAILURE
     Dosage: 1 DF, QD
     Route: 048
     Dates: start: 20080101
  7. TORASEMIDE [Suspect]
     Indication: RENAL FAILURE
     Dosage: 1 DF, QD
     Route: 048
     Dates: start: 20080101
  8. OXYBUTYNIN CHLORIDE [Suspect]
     Indication: POLLAKIURIA
     Dosage: 5 MG, BID
     Route: 048
     Dates: start: 20080101

REACTIONS (11)
  - ANAL EROSION [None]
  - BLISTER [None]
  - ERYTHEMA [None]
  - FATIGUE [None]
  - LIP EROSION [None]
  - MUCOSAL EROSION [None]
  - OCULAR HYPERAEMIA [None]
  - ORAL MUCOSA EROSION [None]
  - PRURITUS [None]
  - RASH MACULAR [None]
  - STEVENS-JOHNSON SYNDROME [None]
